FAERS Safety Report 17972097 (Version 3)
Quarter: 2020Q3

REPORT INFORMATION
  Report Type: Spontaneous
  Country: JP (occurrence: JP)
  Receive Date: 20200701
  Receipt Date: 20200810
  Transmission Date: 20201103
  Serious: Yes (Disabling)
  Sender: FDA-Public Use
  Company Number: JP-ROCHE-2633891

PATIENT
  Age: 81 Year
  Sex: Female

DRUGS (1)
  1. BONVIVA [Suspect]
     Active Substance: IBANDRONATE SODIUM
     Indication: OSTEOPOROSIS
     Route: 042
     Dates: start: 20160829, end: 201812

REACTIONS (3)
  - Dental caries [Unknown]
  - Osteomyelitis [Unknown]
  - Tooth extraction [Unknown]

NARRATIVE: CASE EVENT DATE: 201810
